FAERS Safety Report 4467904-5 (Version None)
Quarter: 2004Q4

REPORT INFORMATION
  Report Type: 
  Country: None (occurrence: None)
  Receive Date: 20041001
  Receipt Date: 20040913
  Transmission Date: 20050328
  Serious: Yes (Hospitalization)
  Sender: FDA-Public Use
  Company Number: WAES 0408USA01880

PATIENT
  Age: 65 Year
  Sex: Male

DRUGS (2)
  1. COZAAR [Suspect]
     Indication: HYPERTENSION
     Dosage: 50 MG/DAILY;  25 MG/DAILY
     Route: 048
     Dates: start: 20040624, end: 20040720
  2. COZAAR [Suspect]
     Indication: HYPERTENSION
     Dosage: 50 MG/DAILY;  25 MG/DAILY
     Route: 048
     Dates: start: 20040721, end: 20040727

REACTIONS (5)
  - ALANINE AMINOTRANSFERASE INCREASED [None]
  - ASPARTATE AMINOTRANSFERASE INCREASED [None]
  - DIABETES MELLITUS [None]
  - GAMMA-GLUTAMYLTRANSFERASE INCREASED [None]
  - HEPATIC FUNCTION ABNORMAL [None]
